FAERS Safety Report 6553028-X (Version None)
Quarter: 2010Q1

REPORT INFORMATION
  Report Type: 
  Country: None (occurrence: None)
  Receive Date: 20100122
  Receipt Date: 20100106
  Transmission Date: 20100710
  Serious: Yes (Hospitalization)
  Sender: FDA-Public Use
  Company Number: 2010AC000029

PATIENT
  Sex: Female

DRUGS (19)
  1. DIGOXIN [Suspect]
     Dosage: 250 MCG; QD; PO
     Route: 048
     Dates: start: 20030201, end: 20090401
  2. ACCUPRIL [Concomitant]
  3. PROTONIX [Concomitant]
  4. VIVELLE [Concomitant]
  5. MIRALAX [Concomitant]
  6. TRIMOX [Concomitant]
  7. HUMIBID LA [Concomitant]
  8. LEVOTHYROXINE SODIUM [Concomitant]
  9. QUINAPRIL [Concomitant]
  10. HYDROCODONE [Concomitant]
  11. IBUPROFEN [Concomitant]
  12. HYDROCHLOROTHIAZIDE [Concomitant]
  13. CHLOTRIMAZOLE-BETAMETHOS [Concomitant]
  14. OMACOR [Concomitant]
  15. GEMIFIBRIZIL [Concomitant]
  16. CIPROFLOXACIN [Concomitant]
  17. AZITHROMYCIN [Concomitant]
  18. CLINDAMYCIN [Concomitant]
  19. PANTOPRAZOLE [Concomitant]

REACTIONS (4)
  - ECONOMIC PROBLEM [None]
  - EMOTIONAL DISORDER [None]
  - PAIN [None]
  - UNEVALUABLE EVENT [None]
